FAERS Safety Report 25473941 (Version 1)
Quarter: 2025Q2

REPORT INFORMATION
  Report Type: Spontaneous
  Country: US (occurrence: US)
  Receive Date: 20250624
  Receipt Date: 20250624
  Transmission Date: 20250717
  Serious: No
  Sender: REGENERON
  Company Number: US-REGENERON PHARMACEUTICALS, INC.-2024-116593

PATIENT
  Sex: Female

DRUGS (2)
  1. EYLEA HD [Suspect]
     Active Substance: AFLIBERCEPT
     Indication: Product used for unknown indication
  2. EYLEA HD [Suspect]
     Active Substance: AFLIBERCEPT
     Dates: start: 20240606, end: 20240606

REACTIONS (4)
  - Visual acuity reduced [Unknown]
  - Impaired driving ability [Unknown]
  - Social problem [Unknown]
  - Depression [Unknown]
